FAERS Safety Report 10560044 (Version 1)
Quarter: 2014Q4

REPORT INFORMATION
  Report Type: Spontaneous
  Country: US (occurrence: None)
  Receive Date: 20141031
  Receipt Date: 20141031
  Transmission Date: 20150529
  Serious: No
  Sender: FDA-Public Use
  Company Number: None

PATIENT
  Age: 73 Year
  Sex: Female
  Weight: 64.86 kg

DRUGS (1)
  1. IBANDRONATE [Suspect]
     Active Substance: IBANDRONATE SODIUM
     Indication: BONE DISORDER
     Dosage: TAKEN BY MOUTH
     Dates: start: 20140910

REACTIONS (3)
  - Arthralgia [None]
  - Abasia [None]
  - Joint swelling [None]

NARRATIVE: CASE EVENT DATE: 20140910
